FAERS Safety Report 13576380 (Version 6)
Quarter: 2019Q2

REPORT INFORMATION
  Report Type: Report from Study
  Country: US (occurrence: US)
  Receive Date: 20170524
  Receipt Date: 20190424
  Transmission Date: 20190711
  Serious: Yes (Death, Hospitalization, Other)
  Sender: FDA-Public Use
  Company Number: US-SA-2017SA094227

PATIENT
  Age: 11 Year
  Sex: Female
  Weight: 42.1 kg

DRUGS (6)
  1. ALGLUCOSIDASE ALFA [Suspect]
     Active Substance: ALGLUCOSIDASE ALFA
     Dosage: 30 MG/KG, QOW
     Route: 041
     Dates: start: 20160525
  2. ALGLUCOSIDASE ALFA [Suspect]
     Active Substance: ALGLUCOSIDASE ALFA
     Dosage: 20 MG/KG
     Route: 041
  3. KEPPRA [Concomitant]
     Active Substance: LEVETIRACETAM
     Indication: SEIZURE
     Dosage: 100 DF,QD
     Route: 065
  4. PHENOBARBITAL. [Concomitant]
     Active Substance: PHENOBARBITAL
     Indication: SEIZURE
     Dosage: 20 DF,BID
     Route: 065
     Dates: start: 2016
  5. ALGLUCOSIDASE ALFA [Suspect]
     Active Substance: ALGLUCOSIDASE ALFA
     Dosage: 1200 MG
     Route: 041
     Dates: start: 20160921
  6. ONFI [Concomitant]
     Active Substance: CLOBAZAM
     Indication: SEIZURE
     Dosage: 2.5 DF,QD
     Route: 065
     Dates: start: 2016

REACTIONS (7)
  - Respiratory distress [Fatal]
  - Vascular device infection [Recovered/Resolved]
  - Intentional product use issue [Unknown]
  - Tachycardia [Recovered/Resolved]
  - Seizure [Recovered/Resolved]
  - Device issue [Unknown]
  - Cardiac disorder [Unknown]

NARRATIVE: CASE EVENT DATE: 20170421
